FAERS Safety Report 5756593-5 (Version None)
Quarter: 2008Q2

REPORT INFORMATION
  Report Type: 
  Country: None (occurrence: None)
  Receive Date: 20080528
  Receipt Date: 20080515
  Transmission Date: 20081010
  Serious: Yes (Hospitalization)
  Sender: FDA-Public Use
  Company Number: LUP-0274

PATIENT
  Age: 57 Year
  Sex: Male
  Weight: 85.7298 kg

DRUGS (3)
  1. LISINOPRIL [Suspect]
     Indication: HYPERTENSION
     Dosage: SINGLE DOSE  10 MG QD PO
     Route: 048
     Dates: start: 20080406, end: 20080406
  2. IMIQUIMOD(IMIQUIMOD) (IMIQUIMOD) [Concomitant]
  3. MULTIVITAMIN [Concomitant]

REACTIONS (9)
  - ANGIOEDEMA [None]
  - DEHYDRATION [None]
  - DIARRHOEA [None]
  - HYPERSENSITIVITY [None]
  - HYPOTENSION [None]
  - HYPOXIA [None]
  - NAUSEA [None]
  - RENAL FAILURE [None]
  - VOMITING [None]
